FAERS Safety Report 9699770 (Version 3)
Quarter: 2015Q4

REPORT INFORMATION
  Report Type: Report from Study
  Country: US (occurrence: US)
  Receive Date: 20131120
  Receipt Date: 20151022
  Transmission Date: 20160305
  Serious: Yes (Hospitalization, Other)
  Sender: FDA-Public Use
  Company Number: US-ROCHE-1304461

PATIENT
  Age: 31 Year
  Sex: Female

DRUGS (20)
  1. TRIAMCINOLONE ACETONIDE. [Concomitant]
     Active Substance: TRIAMCINOLONE ACETONIDE
     Dosage: 30 DAYS
     Route: 065
  2. IPRATROPIUM BROMIDE. [Concomitant]
     Active Substance: IPRATROPIUM BROMIDE
     Dosage: Q4H-6H
     Route: 065
  3. NASACORT [Concomitant]
     Active Substance: TRIAMCINOLONE ACETONIDE
     Dosage: 55MCG/ACT, 30 DAYS
     Route: 065
  4. XOLAIR [Suspect]
     Active Substance: OMALIZUMAB
     Indication: ASTHMA
     Route: 065
     Dates: start: 20131024
  5. XANAX [Concomitant]
     Active Substance: ALPRAZOLAM
     Dosage: UUD 30 DAYS
     Route: 065
  6. ASTEPRO [Concomitant]
     Active Substance: AZELASTINE HYDROCHLORIDE
     Dosage: ASORD 30 DAYS
     Route: 065
  7. ASMANEX [Concomitant]
     Active Substance: MOMETASONE FUROATE
     Dosage: METERED DOSE, 30 DAYS
     Route: 065
  8. VENTOLIN HFA [Concomitant]
     Active Substance: ALBUTEROL SULFATE
     Dosage: Q4H6H
     Route: 065
  9. NASONEX [Concomitant]
     Active Substance: MOMETASONE FUROATE
     Dosage: 50 MCG/ACT SUSPENSION, 30 DAYS
     Route: 065
  10. SINGULAIR [Concomitant]
     Active Substance: MONTELUKAST SODIUM
     Dosage: 30 DAYS
     Route: 065
  11. EPIPEN [Concomitant]
     Active Substance: EPINEPHRINE
     Dosage: 0.3MG/0.3ML AS ORDERED 30 DAYS
     Route: 065
  12. CUTIVATE [Concomitant]
     Active Substance: FLUTICASONE PROPIONATE
     Dosage: 0.05% AS ORDERED 30 DAYS
     Route: 065
  13. TESSALON [Concomitant]
     Active Substance: BENZONATATE
     Dosage: UUD 30 DAYS
     Route: 065
  14. HYDROXYZINE [Concomitant]
     Active Substance: HYDROXYZINE\HYDROXYZINE HYDROCHLORIDE
     Dosage: 30 DAYS
     Route: 065
  15. PATADAY [Concomitant]
     Active Substance: OLOPATADINE HYDROCHLORIDE
     Dosage: 0.2% SOLUTION 30 DAYS
     Route: 065
  16. VALIUM [Suspect]
     Active Substance: DIAZEPAM
     Indication: PRODUCT USED FOR UNKNOWN INDICATION
     Route: 065
  17. DOXEPIN [Concomitant]
     Active Substance: DOXEPIN
     Dosage: UUD 30 DAYS
     Route: 065
  18. PREDNISONE. [Concomitant]
     Active Substance: PREDNISONE
     Dosage: ASORD 5 DAYS
     Route: 065
  19. OMNARIS [Concomitant]
     Active Substance: CICLESONIDE
     Dosage: 50 MCG/ACT SUSPENSION, 30 DAYS
     Route: 065
  20. TRIAMCINOLONE ACETONIDE. [Concomitant]
     Active Substance: TRIAMCINOLONE ACETONIDE
     Dosage: 30 DAYS
     Route: 065

REACTIONS (26)
  - Dry mouth [Unknown]
  - Urticaria [Unknown]
  - Throat irritation [Unknown]
  - Paranasal sinus discomfort [Unknown]
  - Oropharyngeal pain [Unknown]
  - Pruritus [Unknown]
  - Chest discomfort [Unknown]
  - Fatigue [Unknown]
  - Nasal obstruction [Unknown]
  - Headache [Unknown]
  - Eye allergy [Unknown]
  - Epistaxis [Unknown]
  - Upper-airway cough syndrome [Unknown]
  - Tinnitus [Unknown]
  - Tachycardia [Unknown]
  - Dry skin [Unknown]
  - Pharyngeal oedema [Unknown]
  - Flushing [Unknown]
  - Ear discomfort [Unknown]
  - Malaise [Unknown]
  - Dyspnoea [Unknown]
  - Nasal congestion [Unknown]
  - Rash [Unknown]
  - Nasal pruritus [Unknown]
  - Arthralgia [Unknown]
  - Chest pain [Unknown]

NARRATIVE: CASE EVENT DATE: 20131026
